FAERS Safety Report 9768165 (Version 2)
Quarter: 2013Q4

REPORT INFORMATION
  Report Type: Spontaneous
  Country: US (occurrence: US)
  Receive Date: 20131217
  Receipt Date: 20131217
  Transmission Date: 20140711
  Serious: Yes (Other)
  Sender: FDA-Public Use
  Company Number: PHHY2013US145615

PATIENT
  Sex: Female

DRUGS (5)
  1. BENAZEPRIL [Suspect]
     Indication: HYPERTENSION
     Dosage: 1 DF, UNK
     Dates: start: 201308
  2. DIOVAN HCT [Suspect]
     Indication: HYPERTENSION
     Dosage: 1 DF, UNK
  3. LISINOPRIL [Suspect]
     Indication: HYPERTENSION
     Dosage: 1 DF, UNK
  4. COZAAR [Suspect]
     Indication: HYPERTENSION
     Dosage: 1 DF (50MG), UNK
     Route: 048
  5. AVAPRO [Suspect]
     Indication: HYPERTENSION
     Dosage: 1 DF, UNK

REACTIONS (5)
  - Hypertension [Unknown]
  - Dizziness [Recovered/Resolved]
  - Cough [Recovered/Resolved]
  - Drug ineffective [Recovered/Resolved]
  - Product quality issue [Recovered/Resolved]
